FAERS Safety Report 24084011 (Version 3)
Quarter: 2024Q3

REPORT INFORMATION
  Report Type: Report from Study
  Country: US (occurrence: US)
  Receive Date: 20240712
  Receipt Date: 20240916
  Transmission Date: 20241017
  Serious: Yes (Hospitalization, Other)
  Sender: ACADIA PHARMACEUTICALS
  Company Number: US-ACADIA PHARMACEUTICALS INC.-ACA-2024-PIM-002918

PATIENT
  Age: 85 Year
  Sex: Male

DRUGS (2)
  1. NUPLAZID [Suspect]
     Active Substance: PIMAVANSERIN TARTRATE
     Indication: Parkinson^s disease psychosis
     Dosage: 34 MILLIGRAM, QD
     Route: 048
  2. NUPLAZID [Suspect]
     Active Substance: PIMAVANSERIN TARTRATE
     Dosage: 34 MILLIGRAM, QD
     Route: 048
     Dates: start: 202406

REACTIONS (11)
  - Psychomotor hyperactivity [Not Recovered/Not Resolved]
  - Cerebral haemorrhage [Recovered/Resolved]
  - Aggression [Not Recovered/Not Resolved]
  - Fall [Not Recovered/Not Resolved]
  - Fall [Not Recovered/Not Resolved]
  - Hallucination [Not Recovered/Not Resolved]
  - Dementia [Not Recovered/Not Resolved]
  - Aphasia [Not Recovered/Not Resolved]
  - Hypersomnia [Unknown]
  - Hallucination, visual [Not Recovered/Not Resolved]
  - Drug ineffective [Not Recovered/Not Resolved]

NARRATIVE: CASE EVENT DATE: 20240810
